FAERS Safety Report 16960763 (Version 1)
Quarter: 2019Q4

REPORT INFORMATION
  Report Type: Spontaneous
  Country: CA (occurrence: CA)
  Receive Date: 20191025
  Receipt Date: 20191025
  Transmission Date: 20200122
  Serious: Yes (Congenital Anomaly)
  Sender: FDA-Public Use
  Company Number: CA-TEVA-2019-CA-1126754

PATIENT
  Sex: Male

DRUGS (6)
  1. METHADONE [Concomitant]
     Active Substance: METHADONE HYDROCHLORIDE
     Route: 064
  2. SEPTRA [Concomitant]
     Active Substance: SULFAMETHOXAZOLE\TRIMETHOPRIM
     Route: 064
  3. EFAVIRENZ. [Concomitant]
     Active Substance: EFAVIRENZ
     Route: 064
  4. NEVIRAPINE. [Concomitant]
     Active Substance: NEVIRAPINE
     Route: 064
  5. FLUCONAZOLE. [Suspect]
     Active Substance: FLUCONAZOLE
     Indication: VULVOVAGINAL CANDIDIASIS
     Route: 064
  6. PENTAMIDINE [Concomitant]
     Active Substance: PENTAMIDINE
     Route: 064

REACTIONS (10)
  - Dysmorphism [Not Recovered/Not Resolved]
  - Congenital nose malformation [Not Recovered/Not Resolved]
  - Radioulnar synostosis [Not Recovered/Not Resolved]
  - Skull malformation [Not Recovered/Not Resolved]
  - Synostosis [Not Recovered/Not Resolved]
  - Deafness bilateral [Not Recovered/Not Resolved]
  - Congenital eyelid malformation [Not Recovered/Not Resolved]
  - Hypertelorism of orbit [Not Recovered/Not Resolved]
  - Maternal exposure during pregnancy [Not Recovered/Not Resolved]
  - Eyelid ptosis congenital [Not Recovered/Not Resolved]
